FAERS Safety Report 5012042-6 (Version None)
Quarter: 2006Q2

REPORT INFORMATION
  Report Type: 
  Country: None (occurrence: None)
  Receive Date: 20060526
  Receipt Date: 20060518
  Transmission Date: 20061013
  Serious: Yes (Other)
  Sender: FDA-Public Use
  Company Number: US-GLAXOSMITHKLINE-A0606874A

PATIENT
  Age: 41 Year
  Sex: Female

DRUGS (3)
  1. LAMOTRIGINE [Suspect]
     Indication: EPILEPSY
     Dosage: 100MG PER DAY
     Route: 048
     Dates: start: 20040101
  2. VENLAFAXINE HCL [Suspect]
     Indication: EPILEPSY
     Dosage: 225MG PER DAY
  3. GABITRIL [Suspect]
     Indication: EPILEPSY
     Dosage: 8MG PER DAY

REACTIONS (2)
  - ABORTION SPONTANEOUS [None]
  - KARYOTYPE ANALYSIS ABNORMAL [None]
